FAERS Safety Report 24189350 (Version 1)
Quarter: 2024Q3

REPORT INFORMATION
  Report Type: Spontaneous
  Country: US (occurrence: US)
  Receive Date: 20240808
  Receipt Date: 20240808
  Transmission Date: 20241017
  Serious: Yes (Other)
  Sender: PFIZER
  Company Number: US-PFIZER INC-202400230728

PATIENT
  Sex: Female
  Weight: 0.57 kg

DRUGS (2)
  1. BEVACIZUMAB [Suspect]
     Active Substance: BEVACIZUMAB
     Indication: Retinopathy of prematurity
     Dosage: 0.625 MG/0.025ML INJECTED 1.5 MM BEHIND THE LIMBUS TEMPORALLY ON A 32-GAUGE NEEDLE OD, INTRAVITREAL
  2. BEVACIZUMAB [Suspect]
     Active Substance: BEVACIZUMAB
     Dosage: (OS ONE DAY LATER (UNKNOWN, STAGGER INJECTIONS)

REACTIONS (4)
  - Open angle glaucoma [Recovering/Resolving]
  - Off label use [Unknown]
  - Off label use [Unknown]
  - Off label use [Unknown]
